FAERS Safety Report 24563903 (Version 2)
Quarter: 2024Q4

REPORT INFORMATION
  Report Type: Spontaneous
  Country: GB (occurrence: GB)
  Receive Date: 20241030
  Receipt Date: 20241105
  Transmission Date: 20250115
  Serious: Yes (Other)
  Sender: TEVA
  Company Number: None

PATIENT
  Age: 52 Year
  Sex: Female
  Weight: 51 kg

DRUGS (1)
  1. ROPINIROLE [Suspect]
     Active Substance: ROPINIROLE
     Indication: Restless legs syndrome
     Dosage: AT NIGHT, BATCH NUMBER: I HAVE THROWN AWAY MY OLD SUPPLIES
     Route: 065
     Dates: start: 20111104, end: 20230202

REACTIONS (1)
  - Restless leg augmentation syndrome [Recovered/Resolved with Sequelae]

NARRATIVE: CASE EVENT DATE: 20160607
